FAERS Safety Report 16794171 (Version 1)
Quarter: 2019Q3

REPORT INFORMATION
  Report Type: Spontaneous
  Country: US (occurrence: US)
  Receive Date: 20190719
  Receipt Date: 20190719
  Transmission Date: 20191005
  Serious: Yes (Hospitalization)
  Sender: FDA-Public Use
  Company Number: None

PATIENT
  Age: 90 Year
  Sex: Male
  Weight: 93.3 kg

DRUGS (1)
  1. SULFAMETHOXAZOLE/TRIMETHOPRIM [Suspect]
     Active Substance: SULFAMETHOXAZOLE\TRIMETHOPRIM
     Indication: URINARY TRACT INFECTION
     Dosage: ?          OTHER DOSE:800/160 MG;?
     Route: 048
     Dates: start: 20190308, end: 20190318

REACTIONS (5)
  - Asthenia [None]
  - Hyperkalaemia [None]
  - Blood urea increased [None]
  - Blood creatinine increased [None]
  - Confusional state [None]

NARRATIVE: CASE EVENT DATE: 20190318
